FAERS Safety Report 7072691-0 (Version None)
Quarter: 2010Q4

REPORT INFORMATION
  Report Type: 
  Country: None (occurrence: None)
  Receive Date: 20101029
  Receipt Date: 20100302
  Transmission Date: 20110411
  Serious: No
  Sender: FDA-Public Use
  Company Number: A0847561A

PATIENT
  Age: 65 Year
  Sex: Female

DRUGS (12)
  1. ADVAIR DISKUS 100/50 [Suspect]
     Indication: WHEEZING
     Route: 055
     Dates: start: 20090301
  2. NEURONTIN [Concomitant]
  3. DETROL LA [Concomitant]
  4. MOBIC [Concomitant]
  5. SUDAFED 12 HOUR [Concomitant]
  6. ZOCOR [Concomitant]
  7. CELEXA [Concomitant]
  8. COQ-10 [Concomitant]
  9. VITAMIN D [Concomitant]
  10. VITAMIN E [Concomitant]
  11. NEXIUM [Concomitant]
  12. REQUIP [Concomitant]

REACTIONS (2)
  - VISION BLURRED [None]
  - VITREOUS FLOATERS [None]
